FAERS Safety Report 9767310 (Version 1)
Quarter: 2013Q4

REPORT INFORMATION
  Report Type: Spontaneous
  Country: AU (occurrence: AU)
  Receive Date: 20131217
  Receipt Date: 20131217
  Transmission Date: 20140711
  Serious: Yes (Other)
  Sender: FDA-Public Use
  Company Number: AU-ELI_LILLY_AND_COMPANY-AU201312002427

PATIENT
  Age: 74 Year
  Sex: Female

DRUGS (5)
  1. ZYPREXA [Suspect]
     Indication: SCHIZOPHRENIA
     Dosage: 5 MG, UNKNOWN
     Route: 048
     Dates: start: 20131021
  2. LORAZEPAM [Concomitant]
     Indication: ANXIETY
  3. MIRTAZAPINE [Concomitant]
     Indication: DEPRESSION
  4. CLEXANE [Concomitant]
     Indication: THROMBOSIS
  5. DOCUSATE SODIUM\SENNOSIDES [Concomitant]
     Indication: CONSTIPATION

REACTIONS (3)
  - Loss of consciousness [Unknown]
  - Blood insulin increased [Unknown]
  - Off label use [Unknown]
